FAERS Safety Report 20329642 (Version 2)
Quarter: 2022Q1

REPORT INFORMATION
  Report Type: Other
  Country: US (occurrence: None)
  Receive Date: 20220112
  Receipt Date: 20220113
  Transmission Date: 20220423
  Serious: Yes (Other)
  Sender: FDA-Public Use
  Company Number: US-ROCHE-2996979

PATIENT
  Sex: Female

DRUGS (14)
  1. ACTEMRA [Suspect]
     Active Substance: TOCILIZUMAB
     Indication: Giant cell arteritis
     Dosage: INJECT 162MG SUBCUTANEOUSLY EVERY WEEK
     Route: 058
  2. ACTEMRA [Suspect]
     Active Substance: TOCILIZUMAB
  3. ADVAIR HFA [Concomitant]
     Active Substance: FLUTICASONE PROPIONATE\SALMETEROL XINAFOATE
     Dosage: INHALE 1 PUFF BY MOUTH?QUANTITY 12 G
     Route: 055
  4. FLUTICASONE PROPIONATE [Concomitant]
     Active Substance: FLUTICASONE PROPIONATE
     Dosage: INSTILL 2 SPRAYS IN EACH NOSTRIL, QUANTITY 16 G
  5. HYDROCORTISONE [Concomitant]
     Active Substance: HYDROCORTISONE
     Dosage: APPLY TOPICALLY TO CHEST, SHOULDERS AND HEAD FOR ITCHING
  6. BACLOFEN [Concomitant]
     Active Substance: BACLOFEN
     Dosage: TAKE 1 TABLET BY MOUTH, QUANTITY 30 TABLETS
  7. BETAMETHASONE DIPROPIONATE [Concomitant]
     Active Substance: BETAMETHASONE DIPROPIONATE
     Dosage: APPLY TO HOT SPOTS 2 TIMES A DAY UNTIL ITCHING SUBSIDES, QUANTITY 45 G
  8. CETIRIZINE [Concomitant]
     Active Substance: CETIRIZINE HYDROCHLORIDE
     Dosage: TAKE 1 TABLET BY MOUTH 1 TIME A DAY TO TREAT ALLERGY AND ITCHING SYMPTOMS, QUANTITY 30 TABLETS
  9. GABAPENTIN [Concomitant]
     Active Substance: GABAPENTIN
     Dosage: TAKE 1 CAPSULE BY MOUTH 3 TIMES A DAY, QUANTITY 90 CAPSULES
  10. OMEPRAZOLE [Concomitant]
     Active Substance: OMEPRAZOLE
     Dosage: TAKE 1 CAPSULE BY MOUTH 2 TIMES A DAY, QUANTITY 60 CAPSULES
  11. PRAZOSIN [Concomitant]
     Active Substance: PRAZOSIN
     Dosage: TAKE 1 CAPSULE BY MOUTH 1 TIME A DAY AT BEDTIME, QUANTITY 90 CAPSULES
  12. PREDNISONE [Concomitant]
     Active Substance: PREDNISONE
     Dosage: TAKE 3 TABLETS (60 MG) BY MOUTH DAILY. TAKE WITH FOOD, QUANTITY 84 TABLETS
  13. SERTRALINE [Concomitant]
     Active Substance: SERTRALINE HYDROCHLORIDE
     Dosage: TAKE 2 TABLETS BY MOUTH DAILY, QUANTITY 60 TABLETS
  14. SUPREP BOWEL PREP [Concomitant]
     Active Substance: MAGNESIUM SULFATE\POTASSIUM SULFATE\SODIUM SULFATE
     Dosage: USE AS DIRECTED PER CLINIC INSTRUCTIONS AND PER PACKAGE INSTRUCTIONS FOR 2-DAY SPLIT DOSE REGIMEN FO

REACTIONS (1)
  - Hepatic cancer metastatic [Unknown]
